FAERS Safety Report 4817572-5 (Version None)
Quarter: 2005Q4

REPORT INFORMATION
  Report Type: 
  Country: None (occurrence: None)
  Receive Date: 20051031
  Receipt Date: 20051014
  Transmission Date: 20060501
  Serious: Yes (Hospitalization, Other)
  Sender: FDA-Public Use
  Company Number: T05-JPN-03077-01

PATIENT
  Age: 21 Year
  Sex: Female

DRUGS (4)
  1. ESCITALOPRAM (DOUBLE-BLIND) (ESCITALOPRAM) [Suspect]
     Indication: MAJOR DEPRESSION
     Dates: start: 20050607, end: 20050613
  2. ESCITALOPRAM (DOUBLE-BLIND) (ESCITALOPRAM) [Suspect]
     Indication: MAJOR DEPRESSION
     Dates: start: 20050614, end: 20050801
  3. LORAZEPAM [Concomitant]
  4. LUVOX [Concomitant]

REACTIONS (16)
  - AMNESIA [None]
  - ANXIETY [None]
  - ARTHROPOD BITE [None]
  - CONDITION AGGRAVATED [None]
  - DRUG WITHDRAWAL SYNDROME [None]
  - ELECTROENCEPHALOGRAM ABNORMAL [None]
  - HYPERVENTILATION [None]
  - INSOMNIA [None]
  - INTENTIONAL OVERDOSE [None]
  - INTENTIONAL SELF-INJURY [None]
  - IRRITABILITY [None]
  - LOSS OF CONSCIOUSNESS [None]
  - MAJOR DEPRESSION [None]
  - NASOPHARYNGITIS [None]
  - PRURITUS GENERALISED [None]
  - RASH [None]
